FAERS Safety Report 12084961 (Version 1)
Quarter: 2016Q1

REPORT INFORMATION
  Report Type: Spontaneous
  Country: US (occurrence: US)
  Receive Date: 20160217
  Receipt Date: 20160217
  Transmission Date: 20160526
  Serious: No
  Sender: FDA-Public Use
  Company Number: US-PERRIGO-15US013699

PATIENT
  Age: 48 Year
  Sex: Female

DRUGS (2)
  1. TRETINOIN. [Suspect]
     Active Substance: TRETINOIN
     Dosage: ONE APPLICATION, QHS
     Route: 061
     Dates: start: 201503
  2. TRETINOIN. [Suspect]
     Active Substance: TRETINOIN
     Indication: ACNE
     Dosage: ONE APPLICATION, QHS
     Route: 061
     Dates: start: 2014, end: 201503

REACTIONS (3)
  - Application site paraesthesia [Recovered/Resolved]
  - Drug ineffective [Unknown]
  - Application site exfoliation [Recovered/Resolved]

NARRATIVE: CASE EVENT DATE: 2014
